FAERS Safety Report 13618559 (Version 1)
Quarter: 2017Q2

REPORT INFORMATION
  Report Type: Spontaneous
  Country: US (occurrence: US)
  Receive Date: 20170606
  Receipt Date: 20170606
  Transmission Date: 20170830
  Serious: Yes (Other)
  Sender: FDA-Public Use
  Company Number: US-SA-2017SA099391

PATIENT
  Sex: Female

DRUGS (23)
  1. CIMZIA [Suspect]
     Active Substance: CERTOLIZUMAB PEGOL
     Route: 065
  2. DULERA [Concomitant]
     Active Substance: FORMOTEROL FUMARATE DIHYDRATE\MOMETASONE FUROATE
     Route: 065
  3. VITAMIN D3 [Concomitant]
     Active Substance: CHOLECALCIFEROL
     Route: 065
  4. METHOTREXATE. [Suspect]
     Active Substance: METHOTREXATE
     Route: 065
  5. CYCLOSPORINE. [Suspect]
     Active Substance: CYCLOSPORINE
     Route: 065
  6. EXCEDRIN [Concomitant]
     Active Substance: ACETAMINOPHEN\ASPIRIN\CAFFEINE
     Route: 065
  7. FLONASE [Concomitant]
     Active Substance: FLUTICASONE PROPIONATE
     Route: 065
  8. ENBREL [Suspect]
     Active Substance: ETANERCEPT
     Indication: PSORIATIC ARTHROPATHY
     Route: 065
  9. USTEKINUMAB [Suspect]
     Active Substance: USTEKINUMAB
     Route: 065
     Dates: start: 201405, end: 201508
  10. XELJANZ [Concomitant]
     Active Substance: TOFACITINIB CITRATE
  11. AMBIEN CR [Concomitant]
     Active Substance: ZOLPIDEM TARTRATE
     Route: 065
  12. ARAVA [Suspect]
     Active Substance: LEFLUNOMIDE
     Route: 048
  13. PROAIR HFA [Concomitant]
     Active Substance: ALBUTEROL SULFATE
     Route: 065
  14. ATENOLOL. [Concomitant]
     Active Substance: ATENOLOL
     Route: 065
  15. CLARITIN [Concomitant]
     Active Substance: LORATADINE
     Route: 065
  16. HUMIRA [Suspect]
     Active Substance: ADALIMUMAB
     Route: 065
  17. COSENTYX [Suspect]
     Active Substance: SECUKINUMAB
     Dosage: FREQUENCY: Q4WK
     Route: 058
  18. NORCO [Concomitant]
     Active Substance: ACETAMINOPHEN\HYDROCODONE BITARTRATE
     Route: 065
  19. TRICOR [Concomitant]
     Active Substance: FENOFIBRATE
     Route: 065
  20. REMICADE [Suspect]
     Active Substance: INFLIXIMAB
     Route: 065
  21. OTEZLA [Suspect]
     Active Substance: APREMILAST
     Indication: PSORIASIS
     Route: 048
  22. NYSTATIN. [Concomitant]
     Active Substance: NYSTATIN
     Route: 065
  23. TRAMADOL. [Concomitant]
     Active Substance: TRAMADOL
     Route: 065

REACTIONS (17)
  - Depression [Unknown]
  - Liver function test increased [Unknown]
  - Gout [Unknown]
  - Loss of personal independence in daily activities [Unknown]
  - C-reactive protein increased [Unknown]
  - Hyperuricaemia [Unknown]
  - Gait disturbance [Unknown]
  - Psoriasis [Not Recovered/Not Resolved]
  - Essential hypertension [Unknown]
  - Sinusitis [Unknown]
  - Malaise [Unknown]
  - Psoriatic arthropathy [Not Recovered/Not Resolved]
  - Anxiety [Unknown]
  - Rheumatoid arthritis [Unknown]
  - Asthma [Unknown]
  - Vitamin D deficiency [Unknown]
  - Drug ineffective [Unknown]
